FAERS Safety Report 5074330-7 (Version None)
Quarter: 2006Q3

REPORT INFORMATION
  Report Type: 
  Country: None (occurrence: None)
  Receive Date: 20060808
  Receipt Date: 20050722
  Transmission Date: 20061208
  Serious: No
  Sender: FDA-Public Use
  Company Number: US-AMGEN-US143830

PATIENT
  Sex: Male
  Weight: 105 kg

DRUGS (12)
  1. EPOGEN [Suspect]
     Indication: DIALYSIS
     Dates: start: 20041025
  2. NORVASC [Concomitant]
  3. QUININE SULFATE [Concomitant]
  4. OMEPRAZOLE [Concomitant]
  5. RENAGEL [Concomitant]
  6. LORAZEPAM [Concomitant]
  7. WELLBUTRIN [Concomitant]
  8. AVANDIA [Concomitant]
  9. ASPIRIN [Concomitant]
  10. NEPHRO-CAPS [Concomitant]
  11. NIFEREX [Concomitant]
  12. MIRALAX [Concomitant]

REACTIONS (1)
  - THERAPEUTIC RESPONSE DECREASED [None]
